FAERS Safety Report 22038202 (Version 1)
Quarter: 2023Q1

REPORT INFORMATION
  Report Type: Spontaneous
  Country: RO (occurrence: RO)
  Receive Date: 20230227
  Receipt Date: 20230227
  Transmission Date: 20230417
  Serious: Yes (Other)
  Sender: FDA-Public Use
  Company Number: RO-PFIZER INC-202201379082

PATIENT
  Age: 14 Month
  Sex: Female

DRUGS (7)
  1. MEROPENEM [Suspect]
     Active Substance: MEROPENEM
     Indication: Splenic abscess
     Dosage: 60 MILLIGRAM/KILOGRAM, ONCE A DAY
     Route: 065
  2. CLINDAMYCIN HYDROCHLORIDE [Suspect]
     Active Substance: CLINDAMYCIN HYDROCHLORIDE
     Indication: Splenic abscess
     Dosage: 30 MILLIGRAM/KILOGRAM, ONCE A DAY
     Route: 065
  3. VANCOMYCIN [Suspect]
     Active Substance: VANCOMYCIN
     Indication: Splenic abscess
     Dosage: 40 MILLIGRAM/KILOGRAM, ONCE A DAY
     Route: 065
  4. VANCOMYCIN [Suspect]
     Active Substance: VANCOMYCIN
     Indication: Rash vesicular
  5. FLUCONAZOLE [Suspect]
     Active Substance: FLUCONAZOLE
     Indication: Rash vesicular
     Dosage: 6 MILLIGRAM/KILOGRAM, DAILY
     Route: 065
  6. FLUCONAZOLE [Suspect]
     Active Substance: FLUCONAZOLE
     Dosage: 6 MILLIGRAM/KILOGRAM, DAILY
     Route: 065
  7. HYDROCORTISONE [Concomitant]
     Active Substance: HYDROCORTISONE
     Indication: Product used for unknown indication
     Dosage: UNK
     Route: 065

REACTIONS (5)
  - Diarrhoea [Unknown]
  - Dysbiosis [Unknown]
  - Rash [Unknown]
  - Superficial vein thrombosis [Unknown]
  - Off label use [Unknown]
